FAERS Safety Report 7630634-2 (Version None)
Quarter: 2011Q3

REPORT INFORMATION
  Report Type: 
  Country: None (occurrence: None)
  Receive Date: 20110722
  Receipt Date: 20110710
  Transmission Date: 20111222
  Serious: Yes (Other)
  Sender: FDA-Public Use
  Company Number: PHHY2011MX63959

PATIENT
  Age: 51 Year
  Sex: Female

DRUGS (2)
  1. KARET [Concomitant]
     Dosage: 1 DF, DAILY
     Route: 048
  2. ZOLEDRONOC ACID [Suspect]
     Indication: OSTEOPOROSIS
     Dosage: 5 MG, ONCE YEAR
     Route: 042
     Dates: start: 20110701

REACTIONS (6)
  - ABDOMINAL PAIN [None]
  - HEADACHE [None]
  - FEELING ABNORMAL [None]
  - GASTRITIS [None]
  - NAUSEA [None]
  - COLITIS [None]
